FAERS Safety Report 22159074 (Version 1)
Quarter: 2023Q1

REPORT INFORMATION
  Report Type: Report from Study
  Country: AU (occurrence: AU)
  Receive Date: 20230331
  Receipt Date: 20230331
  Transmission Date: 20230418
  Serious: Yes (Other)
  Sender: FDA-Public Use
  Company Number: AU-ABBVIE-4708378

PATIENT
  Age: 60 Year
  Sex: Female

DRUGS (2)
  1. CARBIDOPA\LEVODOPA [Suspect]
     Active Substance: CARBIDOPA\LEVODOPA
     Indication: Parkinson^s disease
     Dosage: MORNING DOSE 8.5 MLS;CONTINUOUS DOSE 4.7 MLS/HR; EXTRA DOSE 0.5 MLS
     Dates: start: 20230220
  2. CARBIDOPA\LEVODOPA [Suspect]
     Active Substance: CARBIDOPA\LEVODOPA

REACTIONS (3)
  - Surgery [Unknown]
  - Anxiety [Unknown]
  - Agitation [Unknown]

NARRATIVE: CASE EVENT DATE: 20230317
